FAERS Safety Report 16565123 (Version 1)
Quarter: 2019Q3

REPORT INFORMATION
  Report Type: Spontaneous
  Country: US (occurrence: US)
  Receive Date: 20190711
  Receipt Date: 20190711
  Transmission Date: 20191004
  Serious: Yes (Other)
  Sender: FDA-Public Use
  Company Number: None

PATIENT
  Age: 59 Year
  Sex: Female

DRUGS (3)
  1. RAMIPRIL. [Suspect]
     Active Substance: RAMIPRIL
     Route: 048
     Dates: start: 20190402, end: 20190425
  2. CHOLECALCIFEROL 1000 UNIT [Concomitant]
     Dates: start: 20190416, end: 20190711
  3. NITROFURANTOIN 100MG [Concomitant]
     Active Substance: NITROFURANTOIN
     Dates: start: 20190402, end: 20190407

REACTIONS (2)
  - Visual impairment [None]
  - Photopsia [None]

NARRATIVE: CASE EVENT DATE: 20190425
